FAERS Safety Report 5886901-6 (Version None)
Quarter: 2008Q3

REPORT INFORMATION
  Report Type: 
  Country: None (occurrence: None)
  Receive Date: 20080915
  Receipt Date: 20080901
  Transmission Date: 20090109
  Serious: Yes (Death)
  Sender: FDA-Public Use
  Company Number: 004054

PATIENT
  Sex: Male

DRUGS (2)
  1. PLETAL [Suspect]
     Dosage: 100 MG, ORAL
     Route: 048
     Dates: start: 20070216
  2. ACETYLSALICYLIC ACID SRT [Concomitant]

REACTIONS (1)
  - PALPITATIONS [None]
